FAERS Safety Report 18923441 (Version 1)
Quarter: 2021Q1

REPORT INFORMATION
  Report Type: Report from Study
  Country: US (occurrence: US)
  Receive Date: 20210222
  Receipt Date: 20210222
  Transmission Date: 20210420
  Serious: Yes (Hospitalization)
  Sender: FDA-Public Use
  Company Number: US-JNJFOC-20210221051

PATIENT
  Sex: Female

DRUGS (6)
  1. SPRAVATO [Suspect]
     Active Substance: ESKETAMINE
     Dates: start: 20191104, end: 20191121
  2. SPRAVATO [Suspect]
     Active Substance: ESKETAMINE
     Dates: start: 20191218, end: 20210203
  3. SPRAVATO [Suspect]
     Active Substance: ESKETAMINE
     Dates: start: 20191126, end: 20191126
  4. SPRAVATO [Suspect]
     Active Substance: ESKETAMINE
     Dates: start: 20191127, end: 20191127
  5. SPRAVATO [Suspect]
     Active Substance: ESKETAMINE
     Dates: start: 20191210, end: 20191210
  6. SPRAVATO [Suspect]
     Active Substance: ESKETAMINE
     Indication: DEPRESSION
     Dates: start: 20191203, end: 20191203

REACTIONS (1)
  - Hospitalisation [Unknown]
